FAERS Safety Report 6408530-8 (Version None)
Quarter: 2009Q4

REPORT INFORMATION
  Report Type: 
  Country: None (occurrence: None)
  Receive Date: 20091021
  Receipt Date: 20091014
  Transmission Date: 20100525
  Serious: Yes (Hospitalization, Disabling, Other)
  Sender: FDA-Public Use
  Company Number: FR-AMGEN-UK357833

PATIENT
  Sex: Male

DRUGS (6)
  1. VECTIBIX [Suspect]
     Indication: COLORECTAL CANCER
     Route: 042
     Dates: start: 20090107
  2. DOXYCYCLINE [Concomitant]
     Dates: start: 20090107, end: 20090126
  3. RANIPLEX [Concomitant]
     Route: 042
  4. ZOPHREN [Concomitant]
     Route: 042
  5. SOLU-MEDROL [Concomitant]
     Route: 042
  6. POLARAMINE [Concomitant]
     Route: 042

REACTIONS (1)
  - JUGULAR VEIN THROMBOSIS [None]
